FAERS Safety Report 24864914 (Version 1)
Quarter: 2025Q1

REPORT INFORMATION
  Report Type: Spontaneous
  Country: US (occurrence: US)
  Receive Date: 20250121
  Receipt Date: 20250121
  Transmission Date: 20250409
  Serious: No
  Sender: STRIDES
  Company Number: US-STRIDES ARCOLAB LIMITED-2024SP011901

PATIENT
  Age: 70 Year
  Sex: Male

DRUGS (9)
  1. MINOCYCLINE [Suspect]
     Active Substance: MINOCYCLINE HYDROCHLORIDE
     Indication: Borderline leprosy
     Route: 065
  2. METHOTREXATE [Suspect]
     Active Substance: METHOTREXATE
     Indication: Immunomodulatory therapy
     Route: 065
  3. METHOTREXATE [Suspect]
     Active Substance: METHOTREXATE
     Indication: Borderline leprosy
  4. METHOTREXATE [Suspect]
     Active Substance: METHOTREXATE
     Indication: Type IV hypersensitivity reaction
  5. RIFAMPIN [Suspect]
     Active Substance: RIFAMPIN
     Indication: Borderline leprosy
     Route: 065
  6. MOXIFLOXACIN [Suspect]
     Active Substance: MOXIFLOXACIN
     Indication: Borderline leprosy
     Route: 065
  7. PREDNISONE [Concomitant]
     Active Substance: PREDNISONE
     Indication: Immunomodulatory therapy
     Route: 065
  8. PREDNISONE [Concomitant]
     Active Substance: PREDNISONE
     Indication: Borderline leprosy
  9. PREDNISONE [Concomitant]
     Active Substance: PREDNISONE
     Indication: Type IV hypersensitivity reaction

REACTIONS (2)
  - Type IV hypersensitivity reaction [Unknown]
  - Off label use [Unknown]
